FAERS Safety Report 13873641 (Version 1)
Quarter: 2017Q3

REPORT INFORMATION
  Report Type: Spontaneous
  Country: DE (occurrence: DE)
  Receive Date: 20170816
  Receipt Date: 20170816
  Transmission Date: 20171127
  Serious: Yes (Hospitalization)
  Sender: FDA-Public Use
  Company Number: DE-BAYER-2017-154050

PATIENT
  Age: 53 Year
  Sex: Male
  Weight: 64 kg

DRUGS (1)
  1. BETAFERON [Suspect]
     Active Substance: INTERFERON BETA-1B
     Indication: MULTIPLE SCLEROSIS
     Dosage: BETAFERON 250 UG/ML-3-MONTH, 3X14 PIECES
     Dates: start: 200301, end: 20170809

REACTIONS (2)
  - Cellulitis [Not Recovered/Not Resolved]
  - Product contamination [None]

NARRATIVE: CASE EVENT DATE: 20170731
